FAERS Safety Report 11839506 (Version 1)
Quarter: 2015Q4

REPORT INFORMATION
  Report Type: Spontaneous
  Country: US (occurrence: None)
  Receive Date: 20151214
  Receipt Date: 20151214
  Transmission Date: 20160305
  Serious: Yes (Other)
  Sender: FDA-Public Use
  Company Number: None

PATIENT
  Age: 85 Year
  Sex: Female

DRUGS (9)
  1. TARGRETIN [Suspect]
     Active Substance: BEXAROTENE
     Indication: NEOPLASM MALIGNANT
     Route: 048
  2. BENZONATATE. [Concomitant]
     Active Substance: BENZONATATE
  3. HYDROCODONE/APAP [Concomitant]
     Active Substance: ACETAMINOPHEN\HYDROCODONE BITARTRATE
  4. LOSARTAN. [Concomitant]
     Active Substance: LOSARTAN
  5. ATORVASTATIN [Concomitant]
     Active Substance: ATORVASTATIN
  6. NEO/POLY/DEX OINT [Concomitant]
  7. AZITHROMYCIN [Concomitant]
     Active Substance: AZITHROMYCIN ANHYDROUS
  8. SYNTHROID [Concomitant]
     Active Substance: LEVOTHYROXINE SODIUM
  9. VITAMIN D [Concomitant]
     Active Substance: CHOLECALCIFEROL

REACTIONS (2)
  - Therapy change [None]
  - Adverse event [None]

NARRATIVE: CASE EVENT DATE: 201512
